FAERS Safety Report 17588335 (Version 1)
Quarter: 2020Q1

REPORT INFORMATION
  Report Type: Spontaneous
  Country: ES (occurrence: ES)
  Receive Date: 20200326
  Receipt Date: 20200326
  Transmission Date: 20200409
  Serious: Yes (Other)
  Sender: FDA-Public Use
  Company Number: ES-SEATTLE GENETICS-2020SGN01627

PATIENT
  Age: 35 Year
  Sex: Male
  Weight: 90.3 kg

DRUGS (6)
  1. ADCETRIS [Suspect]
     Active Substance: BRENTUXIMAB VEDOTIN
     Indication: HODGKIN^S DISEASE
     Dosage: 1.2 MILLIGRAM/KILOGRAM
     Route: 042
     Dates: start: 20191015, end: 20200220
  2. VINBLASTINE                        /00115802/ [Concomitant]
     Active Substance: VINBLASTINE SULFATE
     Dosage: UNK
  3. DOXORUBICINA                       /00330901/ [Concomitant]
     Active Substance: DOXORUBICIN
     Dosage: UNK
  4. HYDROCORTISONE. [Concomitant]
     Active Substance: HYDROCORTISONE
     Dosage: UNK
  5. APREPITANT DCI [Concomitant]
     Active Substance: APREPITANT
     Dosage: UNK
  6. DACARBAZINA [Concomitant]
     Active Substance: DACARBAZINE
     Dosage: UNK

REACTIONS (2)
  - Skin reaction [Recovering/Resolving]
  - Pneumonitis [Not Recovered/Not Resolved]

NARRATIVE: CASE EVENT DATE: 20200220
